FAERS Safety Report 12749695 (Version 6)
Quarter: 2019Q1

REPORT INFORMATION
  Report Type: Spontaneous
  Country: JP (occurrence: JP)
  Receive Date: 20160916
  Receipt Date: 20190211
  Transmission Date: 20190417
  Serious: Yes (Death, Life-Threatening, Hospitalization)
  Sender: FDA-Public Use
  Company Number: JP-EISAI MEDICAL RESEARCH-EC-2016-020329

PATIENT
  Age: 73 Year
  Sex: Female

DRUGS (1)
  1. LENVATINIB [Suspect]
     Active Substance: LENVATINIB
     Indication: ANAPLASTIC THYROID CANCER
     Route: 048
     Dates: start: 20160516, end: 20160712

REACTIONS (8)
  - Cerebral infarction [Fatal]
  - Palmar-plantar erythrodysaesthesia syndrome [Recovering/Resolving]
  - Arterial haemorrhage [Recovering/Resolving]
  - Oesophageal perforation [Not Recovered/Not Resolved]
  - Haematuria [Not Recovered/Not Resolved]
  - Proteinuria [Unknown]
  - Decreased appetite [Unknown]
  - Hypertension [Recovered/Resolved]

NARRATIVE: CASE EVENT DATE: 2016
